FAERS Safety Report 9127159 (Version 1)
Quarter: 2013Q1

REPORT INFORMATION
  Report Type: Spontaneous
  Country: US (occurrence: US)
  Receive Date: 20130228
  Receipt Date: 20130228
  Transmission Date: 20140127
  Serious: No
  Sender: FDA-Public Use
  Company Number: US-GLAXOSMITHKLINE-A0848684A

PATIENT
  Age: 21 Year
  Sex: Male

DRUGS (3)
  1. LAMOTRIGINE [Suspect]
     Indication: BIPOLAR DISORDER
     Dosage: 100MG PER DAY
     Route: 048
     Dates: start: 200905, end: 201002
  2. LAMICTAL [Suspect]
     Indication: BIPOLAR DISORDER
     Route: 048
     Dates: start: 2008, end: 2010
  3. NO CONCURRENT MEDICATION [Concomitant]

REACTIONS (3)
  - Furuncle [Recovering/Resolving]
  - Rash [Unknown]
  - Scar [Recovering/Resolving]
